FAERS Safety Report 11311306 (Version 1)
Quarter: 2015Q3

REPORT INFORMATION
  Report Type: Spontaneous
  Country: PL (occurrence: None)
  Receive Date: 20150723
  Receipt Date: 20150723
  Transmission Date: 20151125
  Serious: Yes (Other)
  Sender: FDA-Public Use
  Company Number: PL-2015VAL000478

PATIENT
  Sex: Male
  Weight: 1.8 kg

DRUGS (6)
  1. TACROLIMUS (NGX) (TACROLIMUS) [Suspect]
     Active Substance: TACROLIMUS
     Indication: FOETAL EXPOSURE DURING PREGNANCY
     Route: 064
  2. METOPROLOL TARTRATE  (METOPROLOL TARTRATE) [Suspect]
     Active Substance: METOPROLOL TARTRATE
     Indication: FOETAL EXPOSURE DURING PREGNANCY
     Route: 064
  3. AZATHIOPRINE (NGX) (AZATHIOPRINE) [Suspect]
     Active Substance: AZATHIOPRINE
     Indication: FOETAL EXPOSURE DURING PREGNANCY
     Route: 064
  4. PREDNISOLONE (NGX) (PREDNISOLONE) [Suspect]
     Active Substance: PREDNISOLONE
     Indication: FOETAL EXPOSURE DURING PREGNANCY
     Route: 064
  5. METHYLDOPA (NGX) (METHYLDOPA) [Suspect]
     Active Substance: METHYLDOPA
     Indication: FOETAL EXPOSURE DURING PREGNANCY
     Route: 064
  6. ERYTHROPOIETIN (ERYTHROPOIETIN) [Suspect]
     Active Substance: ERYTHROPOIETIN
     Indication: FOETAL EXPOSURE DURING PREGNANCY
     Route: 064

REACTIONS (4)
  - Foetal growth restriction [None]
  - Maternal drugs affecting foetus [None]
  - Premature baby [None]
  - Low birth weight baby [None]
